FAERS Safety Report 10009434 (Version 2)
Quarter: 2014Q1

REPORT INFORMATION
  Report Type: Spontaneous
  Country: US (occurrence: US)
  Receive Date: 20140313
  Receipt Date: 20140313
  Transmission Date: 20141002
  Serious: Yes (Other)
  Sender: FDA-Public Use
  Company Number: US-INCYTE CORPORATION-2012IN001242

PATIENT
  Sex: 0

DRUGS (7)
  1. JAKAFI [Suspect]
     Indication: MYELOFIBROSIS
     Dosage: 10 MG, BID
     Route: 048
     Dates: start: 20120606
  2. JAKAFI [Suspect]
     Dosage: 10 MG, QD
  3. ATENOLOL [Concomitant]
     Dosage: 100 MG, QD
  4. LEVOTHYROXINE SODIUM [Concomitant]
     Dosage: 0.025 MG, QD
  5. AMLODIPINE W/HYDROCHLOROTHIAZIDE [Concomitant]
     Dosage: 5 MG/50, QD
  6. ASA [Concomitant]
     Dosage: 81 MG, QD
  7. ESTRADIOL TRANSDERMAL [Concomitant]
     Dosage: 0.5 MG, QD

REACTIONS (2)
  - Anaemia [Not Recovered/Not Resolved]
  - Blood count abnormal [Unknown]
